FAERS Safety Report 9041308 (Version 1)
Quarter: 2013Q1

REPORT INFORMATION
  Report Type: Spontaneous
  Country: US (occurrence: None)
  Receive Date: 20130114
  Receipt Date: 20130114
  Transmission Date: 20140127
  Serious: Yes (Other)
  Sender: FDA-Public Use
  Company Number: TPA2013A00649

PATIENT
  Age: 46 Year
  Sex: Male
  Weight: 131.54 kg

DRUGS (4)
  1. ACTOS (PIOGLITAZONE HYDROCHLORIDE) [Suspect]
     Indication: TYPE 2 DIABETES MELLITUS
     Dates: start: 20041120
  2. ACTOPLUS MET (PIOGLITAZONE HYDROCHLORIDE,METFORMIN HYDROCHLORIDE) [Suspect]
     Indication: TYPE 2 DIABETES MELLITUS
     Dates: start: 20060330
  3. METFORMIN (METFORMIN) [Concomitant]
  4. GLIPIZIDE (GLIPIZIDE) [Concomitant]

REACTIONS (3)
  - Transitional cell carcinoma [None]
  - Urinary tract obstruction [None]
  - Dysuria [None]
